FAERS Safety Report 15209621 (Version 2)
Quarter: 2018Q4

REPORT INFORMATION
  Report Type: Spontaneous
  Country: IT (occurrence: IT)
  Receive Date: 20180727
  Receipt Date: 20180815
  Transmission Date: 20190204
  Serious: Yes (Death, Hospitalization)
  Sender: FDA-Public Use
  Company Number: IT-TEVA-2018-IT-931457

PATIENT
  Age: 62 Year
  Sex: Male

DRUGS (7)
  1. CANCIDAS [Suspect]
     Active Substance: CASPOFUNGIN ACETATE
     Indication: RELAPSING FEVER
     Dates: start: 20180626, end: 20180629
  2. VANCOMICINA PFIZER 500 MG POLVERE PER SOLUZIONE ORALE E PER INFUSIONE [Suspect]
     Active Substance: VANCOMYCIN
     Indication: RELAPSING FEVER
     Dates: start: 20180524, end: 20180626
  3. MERREM [Suspect]
     Active Substance: MEROPENEM
     Indication: RELAPSING FEVER
     Dates: start: 20180524, end: 20180626
  4. AMIKACIN. [Suspect]
     Active Substance: AMIKACIN
     Indication: RELAPSING FEVER
     Dates: start: 20180524, end: 20180626
  5. LUVION 50 MG COMPRESSE [Concomitant]
  6. CONGESCOR 1,25 MG, COMPRESSE FILM-RIVESTITE [Concomitant]
     Active Substance: BISOPROLOL FUMARATE
     Route: 065
  7. TAZOCIN 4 G/0,5 G POLVERE PER SOLUZIONE PER INFUSIONE [Suspect]
     Active Substance: PIPERACILLIN SODIUM\TAZOBACTAM SODIUM
     Indication: RELAPSING FEVER
     Dates: start: 20180524, end: 20180626

REACTIONS (1)
  - Toxic epidermal necrolysis [Fatal]

NARRATIVE: CASE EVENT DATE: 20180629
